FAERS Safety Report 23383170 (Version 1)
Quarter: 2024Q1

REPORT INFORMATION
  Report Type: Spontaneous
  Country: US (occurrence: US)
  Receive Date: 20240109
  Receipt Date: 20240109
  Transmission Date: 20240409
  Serious: Yes (Life-Threatening, Hospitalization, Other)
  Sender: FDA-Public Use
  Company Number: US-BRISTOL-MYERS SQUIBB COMPANY-2024-003684

PATIENT
  Age: 69 Year
  Sex: Male

DRUGS (1)
  1. LENALIDOMIDE [Suspect]
     Active Substance: LENALIDOMIDE
     Indication: Plasma cell myeloma recurrent
     Dosage: TAKE 1 CAPSULE BY MOUTH DAILY FOR 21 DAYS ON THEN STOP FOR 7 DAYS OFF BEFORE THE NEXT CYCLE
     Route: 048

REACTIONS (2)
  - Influenza [Recovering/Resolving]
  - Pneumonia [Recovering/Resolving]
